FAERS Safety Report 9751039 (Version 1)
Quarter: 2013Q4

REPORT INFORMATION
  Report Type: Report from Study
  Country: CA (occurrence: CA)
  Receive Date: 20131212
  Receipt Date: 20131212
  Transmission Date: 20140711
  Serious: Yes (Other)
  Sender: FDA-Public Use
  Company Number: CA-ABBVIE-13P-028-1176505-00

PATIENT
  Age: 50 Year
  Sex: Female

DRUGS (1)
  1. HUMIRA [Suspect]
     Indication: RHEUMATOID ARTHRITIS
     Route: 058
     Dates: start: 20111129

REACTIONS (4)
  - Rib fracture [Unknown]
  - Chest pain [Unknown]
  - Tremor [Unknown]
  - Rib fracture [Not Recovered/Not Resolved]
